FAERS Safety Report 24020383 (Version 1)
Quarter: 2024Q2

REPORT INFORMATION
  Report Type: Spontaneous
  Country: US (occurrence: US)
  Receive Date: 20240627
  Receipt Date: 20240627
  Transmission Date: 20240716
  Serious: Yes (Other)
  Sender: FDA-Public Use
  Company Number: US-NOVOPROD-1243008

PATIENT
  Age: 72 Year
  Sex: Male

DRUGS (1)
  1. NOVOLOG [Suspect]
     Active Substance: INSULIN ASPART
     Indication: Type 2 diabetes mellitus
     Dosage: UNK
     Route: 058

REACTIONS (5)
  - Aphasia [Recovered/Resolved]
  - Cardiac valve disease [Recovered/Resolved]
  - Coronary artery occlusion [Recovered/Resolved]
  - Cerebrovascular accident [Recovered/Resolved]
  - Thrombosis [Recovered/Resolved]

NARRATIVE: CASE EVENT DATE: 20190101
